FAERS Safety Report 17427752 (Version 1)
Quarter: 2020Q1

REPORT INFORMATION
  Report Type: Spontaneous
  Country: CA (occurrence: CA)
  Receive Date: 20200217
  Receipt Date: 20200217
  Transmission Date: 20200409
  Serious: Yes (Disabling)
  Sender: FDA-Public Use
  Company Number: CA-TEVA-2020-CA-1184425

PATIENT
  Age: 74 Year
  Sex: Female

DRUGS (2)
  1. TEVA-ROSUVASTATIN [Suspect]
     Active Substance: ROSUVASTATIN
     Indication: DYSLIPIDAEMIA
     Dosage: 10 MILLIGRAM DAILY;
     Route: 048
  2. APO-ROSUVASTATIN [Suspect]
     Active Substance: ROSUVASTATIN
     Indication: DYSLIPIDAEMIA
     Dosage: 10 MILLIGRAM DAILY;
     Route: 048

REACTIONS (2)
  - Muscle spasms [Recovered/Resolved]
  - Product substitution issue [Recovered/Resolved]
